FAERS Safety Report 7753684-4 (Version None)
Quarter: 2011Q3

REPORT INFORMATION
  Report Type: 
  Country: None (occurrence: None)
  Receive Date: 20110915
  Receipt Date: 20110915
  Transmission Date: 20111222
  Serious: No
  Sender: FDA-Public Use
  Company Number: None

PATIENT
  Age: 70 Year
  Sex: Female
  Weight: 68.492 kg

DRUGS (2)
  1. MUPIROCIN [Suspect]
     Indication: SINUS CONGESTION
     Dosage: ENOUGH TO COAT NOSTRIL
     Route: 045
     Dates: start: 20110831, end: 20110909
  2. MUPIROCIN [Suspect]
     Indication: RHINALGIA
     Dosage: ENOUGH TO COAT NOSTRIL
     Route: 045
     Dates: start: 20110831, end: 20110909

REACTIONS (3)
  - BLISTER [None]
  - RHINORRHOEA [None]
  - ANAL PRURITUS [None]
